FAERS Safety Report 10629584 (Version 1)
Quarter: 2014Q4

REPORT INFORMATION
  Report Type: Spontaneous
  Country: US (occurrence: US)
  Receive Date: 20141205
  Receipt Date: 20141205
  Transmission Date: 20150529
  Serious: No
  Sender: FDA-Public Use
  Company Number: US-BRISTOL-MYERS SQUIBB COMPANY-21532569

PATIENT
  Sex: Male
  Weight: 65.3 kg

DRUGS (1)
  1. BARACLUDE [Suspect]
     Active Substance: ENTECAVIR
     Dosage: 1DF:0.5 UNITS NOS
     Route: 048
     Dates: start: 2011

REACTIONS (2)
  - Mental impairment [Unknown]
  - Hypersensitivity [Unknown]
